FAERS Safety Report 5148198-4 (Version None)
Quarter: 2006Q4

REPORT INFORMATION
  Report Type: 
  Country: None (occurrence: None)
  Receive Date: 20061110
  Receipt Date: 20061106
  Transmission Date: 20070319
  Serious: Yes (Other)
  Sender: FDA-Public Use
  Company Number: US-BRISTOL-MYERS SQUIBB COMPANY-13567128

PATIENT
  Age: 8 Decade
  Sex: Male

DRUGS (2)
  1. ERBITUX [Suspect]
     Indication: COLON CANCER
     Route: 042
  2. BENADRYL [Concomitant]
     Indication: PREMEDICATION

REACTIONS (2)
  - FLUID RETENTION [None]
  - RESPIRATORY FAILURE [None]
